FAERS Safety Report 9068518 (Version 1)
Quarter: 2013Q1

REPORT INFORMATION
  Report Type: Spontaneous
  Country: US (occurrence: None)
  Receive Date: 20130212
  Receipt Date: 20130212
  Transmission Date: 20140127
  Serious: Yes (Life-Threatening, Other)
  Sender: FDA-Public Use
  Company Number: None

PATIENT
  Age: 66 Year
  Sex: Female
  Weight: 48.6 kg

DRUGS (1)
  1. REFRESH OPTIVE ADVANCED LUBRICANT EYE DROPS [Suspect]
     Indication: DRY EYE
     Dosage: 2 DROPS, 1 TIME USE LEFT EYE
     Dates: start: 20130118

REACTIONS (8)
  - Feeling hot [None]
  - Tongue disorder [None]
  - Swollen tongue [None]
  - Pharyngeal oedema [None]
  - Dysphagia [None]
  - Eye pruritus [None]
  - Nausea [None]
  - Insomnia [None]
